FAERS Safety Report 11362166 (Version 1)
Quarter: 2015Q3

REPORT INFORMATION
  Report Type: Spontaneous
  Country: US (occurrence: US)
  Receive Date: 20150810
  Receipt Date: 20150810
  Transmission Date: 20151125
  Serious: Yes (Death)
  Sender: FDA-Public Use
  Company Number: US-TARO-2015TAR00717

PATIENT
  Age: 89 Year
  Sex: Female

DRUGS (4)
  1. AMIODARONE HCL [Suspect]
     Active Substance: AMIODARONE HYDROCHLORIDE
     Dosage: 400 MG, 1X/DAY
     Dates: start: 201312, end: 20131226
  2. XARELTO [Suspect]
     Active Substance: RIVAROXABAN
     Dosage: UNK
     Dates: end: 20131226
  3. PACERONE [Suspect]
     Active Substance: AMIODARONE HYDROCHLORIDE
     Dosage: 200 MG, UNK
     Dates: start: 2012, end: 201301
  4. AMIODARONE (EON; SANDOZ) [Suspect]
     Active Substance: AMIODARONE
     Dosage: 200 MG, UNK
     Dates: start: 201301, end: 201312

REACTIONS (8)
  - Haemorrhage [Fatal]
  - Pain [Not Recovered/Not Resolved]
  - Anxiety [Not Recovered/Not Resolved]
  - Off label use [Fatal]
  - Injury [Fatal]
  - Drug interaction [Fatal]
  - Hepatitis [Fatal]
  - Emotional distress [Not Recovered/Not Resolved]

NARRATIVE: CASE EVENT DATE: 20131214
